FAERS Safety Report 6228988-7 (Version None)
Quarter: 2009Q2

REPORT INFORMATION
  Report Type: 
  Country: None (occurrence: None)
  Receive Date: 20090615
  Receipt Date: 20090605
  Transmission Date: 20091009
  Serious: Yes (Death, Hospitalization)
  Sender: FDA-Public Use
  Company Number: DE-ABBOTT-09P-062-0570626-00

PATIENT
  Sex: Male
  Weight: 52 kg

DRUGS (2)
  1. KALETRA [Suspect]
     Indication: HIV INFECTION
     Dosage: 2 X 800 MILLIGRAMS
     Route: 048
     Dates: start: 20070307, end: 20070426
  2. KALETRA [Suspect]
     Dosage: 2 X 800 MILLIGRAMS
     Route: 048
     Dates: start: 20070728, end: 20090420

REACTIONS (2)
  - AIDS ENCEPHALOPATHY [None]
  - QUADRIPARESIS [None]
